FAERS Safety Report 8068156-X (Version None)
Quarter: 2012Q1

REPORT INFORMATION
  Report Type: 
  Country: None (occurrence: None)
  Receive Date: 20120124
  Receipt Date: 20110829
  Transmission Date: 20120608
  Serious: No
  Sender: FDA-Public Use
  Company Number: US-AMGEN-USASP2011044037

PATIENT
  Age: 67 Year
  Sex: Female

DRUGS (8)
  1. CITRACAL                           /00471001/ [Concomitant]
     Dosage: UNK
  2. AMLODIPINE BESYLATE AND BENAZEPRIL HCL [Concomitant]
     Dosage: UNK
  3. LEVOTHYROXINE SODIUM [Concomitant]
     Dosage: 1 MUG, UNK
  4. VITAMIN C                          /00008001/ [Concomitant]
     Dosage: 1 MG, UNK
  5. CENTRUM                            /00554501/ [Concomitant]
     Dosage: UNK
  6. PROLIA [Suspect]
     Indication: OSTEOPOROSIS POSTMENOPAUSAL
     Dosage: 60 MG, Q6MO
     Dates: start: 20110101
  7. METOPROLOL SUCCINATE [Concomitant]
     Dosage: 1 MG, UNK
  8. VITAMIN E                          /00110501/ [Concomitant]
     Dosage: UNK

REACTIONS (3)
  - RASH [None]
  - LIP SWELLING [None]
  - BLOOD CALCIUM DECREASED [None]
